FAERS Safety Report 23148402 (Version 1)
Quarter: 2023Q4

REPORT INFORMATION
  Report Type: Spontaneous
  Country: IE (occurrence: IE)
  Receive Date: 20231106
  Receipt Date: 20231106
  Transmission Date: 20240110
  Serious: Yes (Hospitalization)
  Sender: FDA-Public Use
  Company Number: None

PATIENT
  Age: 49 Year
  Sex: Male
  Weight: 85 kg

DRUGS (5)
  1. TALTZ [Suspect]
     Active Substance: IXEKIZUMAB
     Indication: Axial spondyloarthritis
     Dosage: 80 MG, MONTHLY (1/M)
     Route: 058
     Dates: start: 20230116, end: 20230315
  2. TALTZ [Suspect]
     Active Substance: IXEKIZUMAB
     Indication: Peripheral spondyloarthritis
  3. CRESTOR [Concomitant]
     Active Substance: ROSUVASTATIN CALCIUM
     Indication: Hyperlipidaemia
     Dosage: 5 MG, UNKNOWN
     Route: 048
     Dates: start: 20220103
  4. ARCOXIA [Concomitant]
     Active Substance: ETORICOXIB
     Indication: Axial spondyloarthritis
     Dosage: 90 MG, PRN
     Dates: start: 20210301
  5. ARCOXIA [Concomitant]
     Active Substance: ETORICOXIB
     Indication: Peripheral spondyloarthritis

REACTIONS (1)
  - Diverticular perforation [Recovered/Resolved]

NARRATIVE: CASE EVENT DATE: 20230315
